FAERS Safety Report 9646000 (Version 2)
Quarter: 2013Q4

REPORT INFORMATION
  Report Type: Spontaneous
  Country: JP (occurrence: JP)
  Receive Date: 20131025
  Receipt Date: 20131127
  Transmission Date: 20140711
  Serious: Yes (Hospitalization)
  Sender: FDA-Public Use
  Company Number: JP-GLAXOSMITHKLINE-B0935465A

PATIENT
  Age: 66 Year
  Sex: Female

DRUGS (12)
  1. VALTREX [Suspect]
     Indication: HERPES ZOSTER
     Dosage: 500MG PER DAY
     Route: 048
     Dates: start: 20131015, end: 20131017
  2. NICORANDIL [Concomitant]
     Dosage: 5MG PER DAY
     Route: 048
  3. NICORANDIL [Concomitant]
     Dosage: 5MG TWICE PER DAY
     Route: 048
  4. REBAMIPIDE [Concomitant]
     Dosage: 100MG THREE TIMES PER DAY
     Route: 048
  5. BIOFERMIN [Concomitant]
     Dosage: 1IUAX THREE TIMES PER DAY
     Route: 048
  6. VASOLAN [Concomitant]
     Dosage: 40MG TWICE PER DAY
     Route: 048
  7. PREDONINE [Concomitant]
     Dosage: 5MG PER DAY
     Route: 048
  8. LANSOPRAZOLE [Concomitant]
     Dosage: 15MG PER DAY
     Route: 048
  9. THYRADIN S [Concomitant]
     Dosage: 50MCG PER DAY
     Route: 048
  10. ONEALFA [Concomitant]
     Dosage: .5MCG PER DAY
     Route: 048
  11. DOPS [Concomitant]
     Route: 048
  12. AMEZINIUM METILSULFATE [Concomitant]
     Route: 048

REACTIONS (4)
  - Altered state of consciousness [Recovering/Resolving]
  - Dysarthria [Unknown]
  - Dysphagia [Unknown]
  - Dysarthria [Unknown]
